FAERS Safety Report 8107729-2 (Version None)
Quarter: 2012Q1

REPORT INFORMATION
  Report Type: 
  Country: None (occurrence: None)
  Receive Date: 20120202
  Receipt Date: 20120126
  Transmission Date: 20120608
  Serious: Yes (Disabling, Other)
  Sender: FDA-Public Use
  Company Number: JP-JNJFOC-20111210401

PATIENT
  Sex: Female
  Weight: 43 kg

DRUGS (6)
  1. AKINETON [Concomitant]
     Route: 048
     Dates: start: 20080501, end: 20080522
  2. RISPERDAL [Suspect]
     Indication: DELUSIONAL DISORDER, UNSPECIFIED TYPE
     Route: 048
     Dates: start: 20080403, end: 20080430
  3. AN UNKNOWN MEDICATION [Concomitant]
     Route: 065
  4. RISPERDAL [Suspect]
     Route: 048
     Dates: start: 20080501, end: 20080522
  5. RISPERDAL [Suspect]
     Indication: SOMATIC HALLUCINATION
     Route: 048
     Dates: start: 20080403, end: 20080430
  6. RISPERDAL [Suspect]
     Route: 048
     Dates: start: 20080501, end: 20080522

REACTIONS (2)
  - DISUSE SYNDROME [None]
  - PARKINSONISM [None]
